FAERS Safety Report 23196683 (Version 2)
Quarter: 2023Q4

REPORT INFORMATION
  Report Type: Report from Study
  Country: FR (occurrence: FR)
  Receive Date: 20231117
  Receipt Date: 20231124
  Transmission Date: 20240109
  Serious: Yes (Hospitalization)
  Sender: FDA-Public Use
  Company Number: FR-MYLANLABS-2023M1122610

PATIENT
  Sex: Female

DRUGS (6)
  1. DEXMEDETOMIDINE [Suspect]
     Active Substance: DEXMEDETOMIDINE
     Indication: Sedative therapy
     Dosage: UNK, QH, 0.6-0.8 MICROG/KG/H, INFUSION
     Route: 065
  2. DEXMEDETOMIDINE [Suspect]
     Active Substance: DEXMEDETOMIDINE
     Dosage: 0.2 MICROGRAM/KILOGRAM, QH, INFUSION, A TOTAL OF 140MICROG OF DEXMEDETOMIDINE??
     Route: 065
  3. PROPOFOL [Concomitant]
     Active Substance: PROPOFOL
     Indication: General anaesthesia
     Dosage: 160 MILLIGRAM (A TOTAL OF 160MG OF PROPOFOL ADMINISTERED DURING THE SURGERY), INFUSION
     Route: 065
  4. REMIFENTANIL [Concomitant]
     Active Substance: REMIFENTANIL
     Indication: General anaesthesia
     Dosage: UNK, INFUSION
     Route: 065
  5. ROPIVACAINE [Concomitant]
     Active Substance: ROPIVACAINE
     Indication: Transversus abdominis plane block
     Dosage: DOSE: 3.75 MG/ML
     Route: 065
  6. NOREPINEPHRINE [Concomitant]
     Active Substance: NOREPINEPHRINE
     Indication: Product used for unknown indication
     Dosage: 3.1 MICROGRAM/KILOGRAM, QH
     Route: 065

REACTIONS (1)
  - Polyuria [Recovered/Resolved]
